FAERS Safety Report 12200960 (Version 3)
Quarter: 2016Q2

REPORT INFORMATION
  Report Type: Spontaneous
  Country: US (occurrence: US)
  Receive Date: 20160322
  Receipt Date: 20160509
  Transmission Date: 20160902
  Serious: No
  Sender: FDA-Public Use
  Company Number: US-MDT-ADR-2016-00541

PATIENT
  Age: 57 Year
  Sex: Male

DRUGS (1)
  1. BACLOFEN, UNKNOWN [Suspect]
     Active Substance: BACLOFEN
     Indication: MUSCLE SPASTICITY
     Dosage: 863.1 MCG/DAY
     Route: 037

REACTIONS (1)
  - No adverse event [None]
